FAERS Safety Report 7238522-0 (Version None)
Quarter: 2011Q1

REPORT INFORMATION
  Report Type: 
  Country: None (occurrence: None)
  Receive Date: 20110121
  Receipt Date: 20110118
  Transmission Date: 20110831
  Serious: Yes (Life-Threatening)
  Sender: FDA-Public Use
  Company Number: FR-JNJFOC-20110104748

PATIENT
  Age: 69 Year
  Sex: Female

DRUGS (6)
  1. APREPITANT [Suspect]
     Indication: PRODUCT USED FOR UNKNOWN INDICATION
     Route: 048
  2. CARBOPLATIN [Suspect]
     Indication: PRODUCT USED FOR UNKNOWN INDICATION
     Route: 042
  3. METOCLOPRAMIDE [Concomitant]
     Route: 065
  4. ZOPHREN [Suspect]
     Indication: PRODUCT USED FOR UNKNOWN INDICATION
     Route: 048
  5. DOXORUBICIN HCL [Suspect]
     Indication: PRODUCT USED FOR UNKNOWN INDICATION
     Route: 042
  6. NEULASTA [Suspect]
     Indication: CHEMOTHERAPY
     Route: 058

REACTIONS (2)
  - APHAGIA [None]
  - PHARYNGEAL OEDEMA [None]
